FAERS Safety Report 9701543 (Version 1)
Quarter: 2013Q4

REPORT INFORMATION
  Report Type: Spontaneous
  Country: US (occurrence: None)
  Receive Date: 20131120
  Receipt Date: 20131120
  Transmission Date: 20140711
  Serious: Yes (Hospitalization, Other)
  Sender: FDA-Public Use
  Company Number: None

PATIENT
  Age: 45 Year
  Sex: Female
  Weight: 83.92 kg

DRUGS (2)
  1. NORVASC [Suspect]
     Indication: HYPERTENSION
     Dosage: 2 TABLETS ONCE DAILY TAKEN BY MOUTH
     Route: 048
     Dates: start: 20120717, end: 20120717
  2. PROTONIX [Suspect]
     Indication: GASTROOESOPHAGEAL REFLUX DISEASE
     Dosage: 1 TABLET ONCE DAILY TAKEN BY MOUTH
     Route: 048
     Dates: start: 20120703, end: 20120718

REACTIONS (5)
  - Abdominal pain [None]
  - Diarrhoea [None]
  - Rectal haemorrhage [None]
  - Lymphadenopathy [None]
  - B-cell lymphoma [None]
